FAERS Safety Report 4312001-2 (Version None)
Quarter: 2004Q1

REPORT INFORMATION
  Report Type: 
  Country: None (occurrence: None)
  Receive Date: 20040305
  Receipt Date: 20031121
  Transmission Date: 20041129
  Serious: No
  Sender: FDA-Public Use
  Company Number: US-GLAXOSMITHKLINE-A0440821A

PATIENT
  Age: 54 Year
  Sex: Female

DRUGS (2)
  1. REQUIP [Suspect]
     Indication: PARKINSON'S DISEASE
     Dosage: 9MG PER DAY
     Route: 048
     Dates: start: 20030501, end: 20030601
  2. SINEMET [Concomitant]

REACTIONS (5)
  - BEDRIDDEN [None]
  - CHEST PAIN [None]
  - HEADACHE [None]
  - HYPOAESTHESIA [None]
  - MUSCLE TIGHTNESS [None]
